FAERS Safety Report 7047676-0 (Version None)
Quarter: 2010Q4

REPORT INFORMATION
  Report Type: 
  Country: None (occurrence: None)
  Receive Date: 20101015
  Receipt Date: 20101013
  Transmission Date: 20110411
  Serious: Yes (Other)
  Sender: FDA-Public Use
  Company Number: US-MERCK-0907USA05805

PATIENT
  Age: 63 Year
  Sex: Female

DRUGS (5)
  1. FOSAMAX [Suspect]
     Indication: OSTEOPOROSIS
     Route: 048
     Dates: start: 20000531, end: 20001201
  2. FOSAMAX [Suspect]
     Route: 048
     Dates: start: 20010101, end: 20080201
  3. FOSAMAX [Suspect]
     Route: 048
     Dates: start: 20040101
  4. FOSAMAX [Suspect]
     Route: 048
     Dates: end: 20080701
  5. DEPAKOTE [Concomitant]
     Indication: CONVULSION
     Route: 065
     Dates: start: 19890101

REACTIONS (25)
  - ABSCESS [None]
  - ARTHRITIS [None]
  - ASTHENIA [None]
  - BASAL CELL CARCINOMA [None]
  - BLOOD CHOLESTEROL INCREASED [None]
  - BONE DISORDER [None]
  - CEREBROVASCULAR DISORDER [None]
  - DIZZINESS [None]
  - FALL [None]
  - GASTROENTERITIS VIRAL [None]
  - HEAD INJURY [None]
  - HEADACHE [None]
  - HYPOAESTHESIA ORAL [None]
  - HYPOGLYCAEMIA [None]
  - LETHARGY [None]
  - LYMPHOCYTOSIS [None]
  - NEUTROPENIA [None]
  - ORAL INFECTION [None]
  - ORAL TORUS [None]
  - OSTEOMYELITIS [None]
  - OSTEONECROSIS OF JAW [None]
  - OSTEOSCLEROSIS [None]
  - ROTATOR CUFF SYNDROME [None]
  - TEMPOROMANDIBULAR JOINT SYNDROME [None]
  - TENSION HEADACHE [None]
